FAERS Safety Report 22157045 (Version 1)
Quarter: 2023Q1

REPORT INFORMATION
  Report Type: Report from Study
  Country: US (occurrence: US)
  Receive Date: 20230330
  Receipt Date: 20230330
  Transmission Date: 20230417
  Serious: Yes (Other)
  Sender: FDA-Public Use
  Company Number: US-UCBSA-2023015405

PATIENT
  Age: 23 Year
  Sex: Female
  Weight: 61.24 kg

DRUGS (12)
  1. CERTOLIZUMAB PEGOL [Suspect]
     Active Substance: CERTOLIZUMAB PEGOL
     Indication: Rheumatoid arthritis
     Dosage: 400 MILLIGRAM, MONTHLY (QM)
     Route: 058
     Dates: start: 20200715, end: 20220727
  2. CAFFEINE [Concomitant]
     Active Substance: CAFFEINE
     Indication: Product used for unknown indication
     Dosage: 2 SERVING 1.5 WEEK
     Route: 048
     Dates: start: 20220424, end: 20220531
  3. MINERALS\VITAMINS [Concomitant]
     Active Substance: MINERALS\VITAMINS
     Indication: Product used for unknown indication
     Dosage: 1 PILL 1 DAY
     Route: 048
     Dates: start: 20220523, end: 20220727
  4. PROMETHAZINE [Concomitant]
     Active Substance: PROMETHAZINE HYDROCHLORIDE
     Indication: Morning sickness
     Dosage: 12 MILLIGRAM 1.5 DAYS
     Route: 048
     Dates: start: 20220605, end: 20220608
  5. TYLENOL [Concomitant]
     Active Substance: ACETAMINOPHEN
     Indication: Headache
     Dosage: 650 MILLIGRAM 2 TOTAL
     Route: 048
     Dates: start: 20220424, end: 20220617
  6. TYLENOL [Concomitant]
     Active Substance: ACETAMINOPHEN
     Indication: Arthralgia
  7. UNISOM SLEEPMELTS [Concomitant]
     Active Substance: DIPHENHYDRAMINE HYDROCHLORIDE
     Indication: Morning sickness
     Dosage: 25 MILLIGRAM 1 DAY
     Route: 048
     Dates: start: 20220609, end: 20220614
  8. VITAMIN B6 [Concomitant]
     Active Substance: PYRIDOXINE HYDROCHLORIDE
     Indication: Pregnancy
     Dosage: 25 MILLIGRAM 2 DAY
     Route: 048
     Dates: start: 20220612, end: 20220727
  9. VITAMIN B6 [Concomitant]
     Active Substance: PYRIDOXINE HYDROCHLORIDE
     Indication: Morning sickness
  10. ZOFRAN [Concomitant]
     Active Substance: ONDANSETRON HYDROCHLORIDE
     Indication: Nausea
     Dosage: 1 MILLIGRAM 2.5DAY
     Route: 048
     Dates: start: 20220624, end: 20220725
  11. MODERNA COVID-19 VACCINE [Concomitant]
     Active Substance: ELASOMERAN
     Indication: Product used for unknown indication
     Dosage: 1ST DOSE
     Route: 030
     Dates: start: 20210325, end: 20210325
  12. MODERNA COVID-19 VACCINE [Concomitant]
     Active Substance: ELASOMERAN
     Dosage: 2ND DOSE
     Route: 030
     Dates: start: 20210422, end: 20210422

REACTIONS (4)
  - Abortion spontaneous [Unknown]
  - Turner^s syndrome [Unknown]
  - Maternal exposure during pregnancy [Unknown]
  - Maternal exposure before pregnancy [Unknown]

NARRATIVE: CASE EVENT DATE: 20220424
